FAERS Safety Report 4705367-2 (Version None)
Quarter: 2005Q3

REPORT INFORMATION
  Report Type: 
  Country: None (occurrence: None)
  Receive Date: 20050701
  Receipt Date: 20050519
  Transmission Date: 20060218
  Serious: Yes (Other)
  Sender: FDA-Public Use
  Company Number: JP-JNJFOC-20050506994

PATIENT
  Age: 40 Year
  Sex: Female

DRUGS (1)
  1. MICONAZOLE [Suspect]
     Indication: DRUG USE FOR UNKNOWN INDICATION
     Dosage: 2MG 9 TIMES A DAY FOR 16 DAYS
     Route: 024

REACTIONS (1)
  - VASCULITIS CEREBRAL [None]
